FAERS Safety Report 22788054 (Version 2)
Quarter: 2025Q3

REPORT INFORMATION
  Report Type: Spontaneous
  Country: US (occurrence: US)
  Receive Date: 20230804
  Receipt Date: 20250902
  Transmission Date: 20251020
  Serious: Yes (Hospitalization, Other)
  Sender: ALEXION PHARMACEUTICALS
  Company Number: 2023A174692

PATIENT
  Age: 62 Year
  Sex: Female
  Weight: 61.8 kg

DRUGS (9)
  1. METOPROLOL SUCCINATE [Suspect]
     Active Substance: METOPROLOL SUCCINATE
     Indication: Cardiovascular disorder
     Dates: start: 20220614, end: 20221117
  2. METOPROLOL SUCCINATE [Suspect]
     Active Substance: METOPROLOL SUCCINATE
     Indication: Arrhythmia
  3. PELACARSEN [Suspect]
     Active Substance: PELACARSEN
     Indication: Cardiovascular disorder
  4. CRESTOR [Concomitant]
     Active Substance: ROSUVASTATIN CALCIUM
  5. ASPIRIN [Concomitant]
     Active Substance: ASPIRIN
     Dates: start: 202106, end: 20221116
  6. VITAMIN D [Concomitant]
     Active Substance: VITAMIN D NOS
  7. VITAMIN B12 [Concomitant]
     Active Substance: CYANOCOBALAMIN
  8. RIVAROXABAN [Concomitant]
     Active Substance: RIVAROXABAN
  9. EZETIMIBE [Concomitant]
     Active Substance: EZETIMIBE

REACTIONS (8)
  - Chest discomfort [Recovered/Resolved]
  - Electrocardiogram ST segment depression [Unknown]
  - Asthenia [Unknown]
  - Dizziness [Unknown]
  - Chest pain [Unknown]
  - Cardiac stress test abnormal [Unknown]
  - Sinus bradycardia [Unknown]
  - Heart rate abnormal [Unknown]

NARRATIVE: CASE EVENT DATE: 20221117
